FAERS Safety Report 4317692-8 (Version None)
Quarter: 2004Q1

REPORT INFORMATION
  Report Type: 
  Country: None (occurrence: None)
  Receive Date: 20040315
  Receipt Date: 20040304
  Transmission Date: 20041129
  Serious: Yes (Other)
  Sender: FDA-Public Use
  Company Number: US-ROCHE-360608

PATIENT
  Sex: Female

DRUGS (2)
  1. ACCUTANE [Suspect]
     Indication: DRUG USE FOR UNKNOWN INDICATION
     Route: 065
  2. BACTRIM [Interacting]
     Indication: CYSTITIS
     Route: 065

REACTIONS (8)
  - BENIGN INTRACRANIAL HYPERTENSION [None]
  - DEAFNESS [None]
  - DRUG INTERACTION [None]
  - INCOHERENT [None]
  - MENINGITIS [None]
  - SYNCOPE [None]
  - TINNITUS [None]
  - VOMITING [None]
